FAERS Safety Report 9383620 (Version 1)
Quarter: 2013Q3

REPORT INFORMATION
  Report Type: Spontaneous
  Country: US (occurrence: US)
  Receive Date: 20130704
  Receipt Date: 20130704
  Transmission Date: 20140515
  Serious: Yes (Life-Threatening)
  Sender: FDA-Public Use
  Company Number: US-PFIZER INC-2013196681

PATIENT
  Age: 56 Year
  Sex: Female

DRUGS (3)
  1. TRANEXAMIC ACID [Suspect]
     Dosage: 10 MG/KG 1 HOUR BEFORE SURGERY
  2. CLINDAMYCIN [Concomitant]
     Dosage: 1 DF, SINGLE
  3. VANCOMYCIN [Concomitant]
     Dosage: 1 DF, SINGLE

REACTIONS (1)
  - Acute myocardial infarction [Unknown]
